FAERS Safety Report 20092020 (Version 1)
Quarter: 2021Q4

REPORT INFORMATION
  Report Type: Spontaneous
  Country: US (occurrence: None)
  Receive Date: 20211119
  Receipt Date: 20211119
  Transmission Date: 20220303
  Serious: Yes (Hospitalization)
  Sender: FDA-Public Use
  Company Number: None

PATIENT
  Age: 71 Year
  Sex: Male
  Weight: 133 kg

DRUGS (1)
  1. TOCILIZUMAB [Suspect]
     Active Substance: TOCILIZUMAB
     Indication: Upper respiratory tract infection
     Dosage: FREQUENCY : ONCE;?
     Route: 042
     Dates: start: 20210811, end: 20210811

REACTIONS (3)
  - Acute kidney injury [None]
  - Enterococcus test positive [None]
  - Endocarditis [None]

NARRATIVE: CASE EVENT DATE: 20210817
